FAERS Safety Report 14246886 (Version 1)
Quarter: 2017Q4

REPORT INFORMATION
  Report Type: Report from Study
  Country: DE (occurrence: DE)
  Receive Date: 20171204
  Receipt Date: 20171204
  Transmission Date: 20180321
  Serious: Yes (Other)
  Sender: FDA-Public Use
  Company Number: DE-ROCHE-1333450

PATIENT

DRUGS (4)
  1. ROFECOXIB [Suspect]
     Active Substance: ROFECOXIB
     Indication: HEPATOCELLULAR CARCINOMA
     Route: 048
  2. CAPECITABINE. [Suspect]
     Active Substance: CAPECITABINE
     Indication: HEPATOCELLULAR CARCINOMA
     Dosage: 1G/M2, FROM DAY 15+
     Route: 048
  3. PIOGLITAZONE. [Suspect]
     Active Substance: PIOGLITAZONE
     Indication: HEPATOCELLULAR CARCINOMA
     Route: 048
  4. ETORICOXIB [Suspect]
     Active Substance: ETORICOXIB
     Indication: HEPATOCELLULAR CARCINOMA
     Route: 048

REACTIONS (8)
  - Anaemia [Unknown]
  - Leukopenia [Unknown]
  - Oedema [Unknown]
  - Ascites [Unknown]
  - Renal failure [Unknown]
  - Diarrhoea [Unknown]
  - Decreased appetite [Unknown]
  - Palmar-plantar erythrodysaesthesia syndrome [Unknown]
